FAERS Safety Report 8880923 (Version 1)
Quarter: 2012Q4

REPORT INFORMATION
  Report Type: 
  Country: US (occurrence: US)
  Receive Date: 20121101
  Receipt Date: 20121101
  Transmission Date: 20130627
  Serious: Yes (Other)
  Sender: FDA-Public Use
  Company Number: US-BRISTOL-MYERS SQUIBB COMPANY-17062332

PATIENT
  Age: 73 Year
  Sex: Female

DRUGS (1)
  1. ONGLYZA TABS 5 MG [Suspect]
     Dosage: Total doses: 2
     Dates: start: 201210, end: 201210

REACTIONS (1)
  - Stevens-Johnson syndrome [Unknown]
